FAERS Safety Report 6056774-X (Version None)
Quarter: 2009Q1

REPORT INFORMATION
  Report Type: 
  Country: None (occurrence: None)
  Receive Date: 20090126
  Receipt Date: 20090107
  Transmission Date: 20090719
  Serious: Yes (Death)
  Sender: FDA-Public Use
  Company Number: B0553742A

PATIENT
  Age: 57 Year
  Sex: Male

DRUGS (8)
  1. PROPRANOLOL HCL [Suspect]
     Dosage: ORAL
     Route: 048
  2. LITHIUM CARBONATE [Suspect]
  3. PAXIL [Suspect]
  4. VERAPAMIL [Suspect]
  5. QUETIAPINE FUMARATE [Suspect]
  6. GLIPIZIDE [Suspect]
  7. CLONIDINE [Suspect]
  8. MODAFINIL [Suspect]

REACTIONS (1)
  - DEATH [None]
